FAERS Safety Report 8008773-6 (Version None)
Quarter: 2011Q4

REPORT INFORMATION
  Report Type: 
  Country: None (occurrence: None)
  Receive Date: 20111227
  Receipt Date: 20111220
  Transmission Date: 20120403
  Serious: Yes (Death)
  Sender: FDA-Public Use
  Company Number: JP-SANOFI-AVENTIS-2011SA075940

PATIENT
  Age: 70 Year
  Sex: Male
  Weight: 61.5 kg

DRUGS (10)
  1. MAGNESIUM HYDROXIDE TAB [Concomitant]
     Route: 048
     Dates: start: 20080416
  2. DECADRON A [Concomitant]
  3. ANTIBIOTICS [Concomitant]
     Route: 065
  4. GASMOTIN [Concomitant]
     Dosage: A DOSE OF 5 GIVEN THREE TIMES A DAY
     Route: 048
     Dates: start: 20080417
  5. SEROTONE [Concomitant]
     Route: 041
     Dates: start: 20080414
  6. RABEPRAZOLE SODIUM [Concomitant]
     Route: 048
     Dates: start: 20080416
  7. ALLOID [Concomitant]
     Route: 048
     Dates: start: 20080416
  8. TAXOTERE [Suspect]
     Dosage: 1 CYCLE
     Route: 041
     Dates: start: 20080414
  9. FOIPAN [Concomitant]
     Dosage: A DOSE OF 100 GIVEN THREE TIMES A DAY
     Route: 048
     Dates: start: 20080417
  10. FERROUS FUMARATE [Concomitant]
     Route: 048
     Dates: start: 20080411

REACTIONS (2)
  - INTERSTITIAL LUNG DISEASE [None]
  - DYSPNOEA [None]
